FAERS Safety Report 14126594 (Version 1)
Quarter: 2017Q4

REPORT INFORMATION
  Report Type: Spontaneous
  Country: US (occurrence: US)
  Receive Date: 20171025
  Receipt Date: 20171025
  Transmission Date: 20180321
  Serious: Yes (Hospitalization)
  Sender: FDA-Public Use
  Company Number: US-ACTELION-A-US2017-161091

PATIENT
  Age: 54 Year
  Sex: Male

DRUGS (12)
  1. VELETRI [Suspect]
     Active Substance: EPOPROSTENOL
     Indication: PULMONARY HYPERTENSION
     Dosage: 2-4 NG/KG, PER MIN
     Route: 042
     Dates: start: 20170921, end: 20170921
  2. ALBUTEROL. [Concomitant]
     Active Substance: ALBUTEROL
  3. ASPIRIN. [Concomitant]
     Active Substance: ASPIRIN
  4. LEVEMIR [Concomitant]
     Active Substance: INSULIN DETEMIR
  5. OMEPRAZOLE. [Concomitant]
     Active Substance: OMEPRAZOLE
  6. HYZAAR [Concomitant]
     Active Substance: HYDROCHLOROTHIAZIDE\LOSARTAN POTASSIUM
  7. SPIRIVA [Concomitant]
     Active Substance: TIOTROPIUM BROMIDE MONOHYDRATE
  8. BREO ELLIPTA [Concomitant]
     Active Substance: FLUTICASONE FUROATE\VILANTEROL TRIFENATATE
  9. COREG [Concomitant]
     Active Substance: CARVEDILOL
  10. METFORMIN [Concomitant]
     Active Substance: METFORMIN HYDROCHLORIDE
  11. LASIX [Concomitant]
     Active Substance: FUROSEMIDE
  12. FISH OIL W/VITAMIN D NOS [Concomitant]

REACTIONS (5)
  - Hypoxia [Recovered/Resolved]
  - Chest pain [Recovered/Resolved]
  - Product quality issue [Unknown]
  - Flushing [Recovered/Resolved]
  - Hypotension [Recovered/Resolved]

NARRATIVE: CASE EVENT DATE: 20170921
